FAERS Safety Report 15172021 (Version 1)
Quarter: 2018Q3

REPORT INFORMATION
  Report Type: Spontaneous
  Country: US (occurrence: US)
  Receive Date: 20180622
  Receipt Date: 20180622
  Transmission Date: 20181010
  Serious: Yes (Hospitalization)
  Sender: FDA-Public Use
  Company Number: None

PATIENT
  Age: 70 Year
  Sex: Female
  Weight: 92.2 kg

DRUGS (1)
  1. TRULICITY [Suspect]
     Active Substance: DULAGLUTIDE
     Indication: DIABETES MELLITUS
     Dosage: ?          OTHER FREQUENCY:WEEKLY;?
     Route: 058
     Dates: start: 20180604, end: 20180611

REACTIONS (8)
  - Abdominal pain [None]
  - Diarrhoea [None]
  - Discoloured vomit [None]
  - Pancreatitis acute [None]
  - Drug level increased [None]
  - Acute kidney injury [None]
  - Nausea [None]
  - Lactic acidosis [None]

NARRATIVE: CASE EVENT DATE: 20180618
